FAERS Safety Report 14505323 (Version 1)
Quarter: 2018Q1

REPORT INFORMATION
  Report Type: Spontaneous
  Country: US (occurrence: US)
  Receive Date: 20180208
  Receipt Date: 20180208
  Transmission Date: 20180509
  Serious: No
  Sender: FDA-Public Use
  Company Number: US-BAYER-2018-025434

PATIENT
  Age: 81 Year
  Sex: Male
  Weight: 75.74 kg

DRUGS (1)
  1. MIRALAX [Suspect]
     Active Substance: POLYETHYLENE GLYCOL 3350
     Indication: POLYP
     Dosage: 1 DF, QD
     Route: 048
     Dates: start: 20180201, end: 20180204

REACTIONS (8)
  - Therapeutic product ineffective [Unknown]
  - Adverse drug reaction [Not Recovered/Not Resolved]
  - Product use in unapproved indication [Unknown]
  - Diarrhoea [Not Recovered/Not Resolved]
  - Off label use [Unknown]
  - Product prescribing issue [None]
  - Product prescribing issue [Unknown]
  - Drug physiologic incompatibility [Not Recovered/Not Resolved]

NARRATIVE: CASE EVENT DATE: 20180201
